FAERS Safety Report 5224110-4 (Version None)
Quarter: 2007Q1

REPORT INFORMATION
  Report Type: 
  Country: None (occurrence: None)
  Receive Date: 20070130
  Receipt Date: 20070125
  Transmission Date: 20070707
  Serious: Yes (Other)
  Sender: FDA-Public Use
  Company Number: US-JNJFOC-20070106953

PATIENT
  Age: 48 Year
  Sex: Female
  Weight: 64.86 kg

DRUGS (5)
  1. IMODIUM A-D [Suspect]
  2. IMODIUM A-D [Suspect]
     Indication: DIARRHOEA
     Dosage: 4 MG AT 0800 AND 2MG AT 0830
  3. IMURAN [Suspect]
     Indication: IMMUNE SYSTEM DISORDER
  4. NAPROXEN [Suspect]
     Indication: DRUG USE FOR UNKNOWN INDICATION
  5. GENERIC ASA [Suspect]
     Indication: DRUG USE FOR UNKNOWN INDICATION

REACTIONS (1)
  - LOSS OF CONSCIOUSNESS [None]
